FAERS Safety Report 18320969 (Version 1)
Quarter: 2020Q3

REPORT INFORMATION
  Report Type: Spontaneous
  Country: DE (occurrence: DE)
  Receive Date: 20200929
  Receipt Date: 20200929
  Transmission Date: 20201103
  Serious: Yes (Hospitalization)
  Sender: FDA-Public Use
  Company Number: DE-TEVA-2020-DE-1831399

PATIENT
  Age: 65 Year
  Sex: Female
  Weight: 53 kg

DRUGS (7)
  1. LEVOTHYROXIN?NATRIUM [Concomitant]
     Active Substance: LEVOTHYROXINE SODIUM
     Dosage: 75 MICROGRAM DAILY; 1?0?0?0
  2. NINTEDANIB [Suspect]
     Active Substance: NINTEDANIB
     Dosage: 400 MILLIGRAM DAILY; 1?0?1?0
  3. METAMIZOL [Concomitant]
     Active Substance: METAMIZOLE SODIUM
     Dosage: 1500 MILLIGRAM DAILY; 1?1?1?0
  4. PANTOPRAZOL [Concomitant]
     Active Substance: PANTOPRAZOLE SODIUM
     Dosage: 40 MILLIGRAM DAILY; 1?0?0?0
  5. DOCETAXEL. [Suspect]
     Active Substance: DOCETAXEL
     Dosage: 75 MG/M , 02062020
  6. CALCIUM VITAMIN D3 ACIS 500MG/400I.E. [Concomitant]
     Dosage: 1 DOSAGE FORMS DAILY; 500|400 MG/IE, 1?0?0?0
  7. DENOSUMAB [Suspect]
     Active Substance: DENOSUMAB
     Dosage: NK MG, LAST 12052020

REACTIONS (1)
  - Musculoskeletal pain [Unknown]

NARRATIVE: CASE EVENT DATE: 20200729
